FAERS Safety Report 6620699-9 (Version None)
Quarter: 2010Q1

REPORT INFORMATION
  Report Type: 
  Country: None (occurrence: None)
  Receive Date: 20100309
  Receipt Date: 20100225
  Transmission Date: 20100710
  Serious: Yes (Other)
  Sender: FDA-Public Use
  Company Number: RU-BAYER-201015345GPV

PATIENT
  Age: 36 Year
  Sex: Female

DRUGS (1)
  1. YARINA [Suspect]
     Indication: CONTRACEPTION
     Dosage: 21 + 7
     Route: 048
     Dates: start: 20060301, end: 20060401

REACTIONS (6)
  - DYSGEUSIA [None]
  - MIGRAINE [None]
  - MIGRAINE WITH AURA [None]
  - NAUSEA [None]
  - VISUAL FIELD DEFECT [None]
  - VOMITING [None]
